FAERS Safety Report 5656201-8 (Version None)
Quarter: 2008Q1

REPORT INFORMATION
  Report Type: 
  Country: None (occurrence: None)
  Receive Date: 20080308
  Receipt Date: 20080226
  Transmission Date: 20080703
  Serious: Yes (Hospitalization)
  Sender: FDA-Public Use
  Company Number: NO-ELI_LILLY_AND_COMPANY-NO200802006094

PATIENT
  Sex: Female

DRUGS (5)
  1. ZYPREXA [Suspect]
     Indication: BIPOLAR I DISORDER
     Dates: end: 20080101
  2. LITAREX [Interacting]
     Dosage: UNK, UNK
     Route: 048
  3. NITRAZEPAM [Concomitant]
     Dosage: 5 MG, EACH EVENING
     Route: 048
  4. VALPROATE SODIUM [Concomitant]
     Route: 048
  5. SELO-ZOK [Concomitant]
     Indication: HYPERTENSION
     Dosage: 50 MG, DAILY (1/D)
     Route: 048

REACTIONS (14)
  - ACUTE STRESS DISORDER [None]
  - AMNESIA [None]
  - BLOOD CREATINE PHOSPHOKINASE INCREASED [None]
  - BLOOD GLUCOSE INCREASED [None]
  - CONFUSIONAL STATE [None]
  - DRUG INTERACTION [None]
  - GAIT DISTURBANCE [None]
  - HEADACHE [None]
  - MENTAL DISORDER [None]
  - MUSCLE RIGIDITY [None]
  - MUTISM [None]
  - RESTLESSNESS [None]
  - TACHYCARDIA [None]
  - UNRESPONSIVE TO STIMULI [None]
